FAERS Safety Report 13702632 (Version 2)
Quarter: 2017Q3

REPORT INFORMATION
  Report Type: Report from Study
  Country: AR (occurrence: AR)
  Receive Date: 20170629
  Receipt Date: 20170717
  Transmission Date: 20171127
  Serious: Yes (Death, Hospitalization)
  Sender: FDA-Public Use
  Company Number: PHHY2017AR095283

PATIENT
  Age: 8 Year
  Sex: Male

DRUGS (1)
  1. ILARIS [Suspect]
     Active Substance: CANAKINUMAB
     Indication: CRYOPYRIN ASSOCIATED PERIODIC SYNDROME
     Dosage: 50 MG EVERY 8 WEEKS (4 MG/KG)
     Route: 065
     Dates: start: 20161223

REACTIONS (15)
  - Respiratory failure [Fatal]
  - Pneumonia [Fatal]
  - Haemoglobin decreased [Unknown]
  - Choking [Fatal]
  - Malnutrition [Fatal]
  - Developmental delay [Fatal]
  - Dysphagia [Fatal]
  - Cyanosis [Fatal]
  - Haematocrit decreased [Unknown]
  - White blood cell count increased [Unknown]
  - C-reactive protein increased [Unknown]
  - Dyspnoea [Fatal]
  - Monocyte count increased [Unknown]
  - Hypoxia [Fatal]
  - Aspiration bronchial [Fatal]

NARRATIVE: CASE EVENT DATE: 20170623
